FAERS Safety Report 23580735 (Version 1)
Quarter: 2024Q1

REPORT INFORMATION
  Report Type: Spontaneous
  Country: FR (occurrence: FR)
  Receive Date: 20240229
  Receipt Date: 20240229
  Transmission Date: 20240409
  Serious: Yes (Death)
  Sender: FDA-Public Use
  Company Number: FR-JNJFOC-20240273035

PATIENT
  Age: 75 Year
  Sex: Male
  Weight: 78 kg

DRUGS (2)
  1. TECVAYLI [Suspect]
     Active Substance: TECLISTAMAB-CQYV
     Indication: Plasma cell myeloma
     Route: 065
     Dates: start: 20230705
  2. TECVAYLI [Suspect]
     Active Substance: TECLISTAMAB-CQYV
     Route: 065
     Dates: end: 20231024

REACTIONS (1)
  - Adverse reaction [Fatal]
